FAERS Safety Report 4743490-7 (Version None)
Quarter: 2005Q3

REPORT INFORMATION
  Report Type: 
  Country: None (occurrence: None)
  Receive Date: 20050809
  Receipt Date: 20050728
  Transmission Date: 20060218
  Serious: Yes (Other)
  Sender: FDA-Public Use
  Company Number: DE-2005-015215

PATIENT
  Age: 16 Year
  Sex: Female

DRUGS (1)
  1. MIRANOVA                 (21) (ETHINYLESTRADIOL, LEVONORGESTREL) [Suspect]
     Dosage: ORAL
     Route: 048
     Dates: start: 20040701

REACTIONS (2)
  - BLOOD PRESSURE INCREASED [None]
  - SUDDEN HEARING LOSS [None]
